FAERS Safety Report 14425492 (Version 2)
Quarter: 2018Q1

REPORT INFORMATION
  Report Type: Report from Study
  Country: PL (occurrence: PL)
  Receive Date: 20180123
  Receipt Date: 20180228
  Transmission Date: 20180509
  Serious: Yes (Other)
  Sender: FDA-Public Use
  Company Number: PHHY2016PL071446

PATIENT
  Age: 68 Year

DRUGS (2)
  1. TASIGNA [Suspect]
     Active Substance: NILOTINIB
     Dosage: 600 MG, UNK
     Route: 065
     Dates: end: 20150915
  2. TASIGNA [Suspect]
     Active Substance: NILOTINIB
     Indication: CHRONIC MYELOID LEUKAEMIA
     Dosage: UNK
     Route: 065
     Dates: start: 20141216

REACTIONS (6)
  - Cholecystitis [Unknown]
  - Weight decreased [Recovered/Resolved]
  - Dry mouth [Recovered/Resolved]
  - Hyperbilirubinaemia [Unknown]
  - Bronchitis [Unknown]
  - Myalgia [Recovered/Resolved]

NARRATIVE: CASE EVENT DATE: 20150207
